FAERS Safety Report 7285207-0 (Version None)
Quarter: 2011Q1

REPORT INFORMATION
  Report Type: 
  Country: None (occurrence: None)
  Receive Date: 20110210
  Receipt Date: 20110131
  Transmission Date: 20110831
  Serious: Yes (Other)
  Sender: FDA-Public Use
  Company Number: FR-JNJFOC-20110201971

PATIENT
  Age: 72 Year
  Sex: Male

DRUGS (7)
  1. SECTRAL [Concomitant]
     Route: 065
  2. FONZYLANE [Concomitant]
     Route: 065
  3. DISOPYRAMIDE PHOSPHATE [Concomitant]
     Route: 065
  4. MICONAZOLE [Suspect]
     Indication: ILL-DEFINED DISORDER
     Route: 065
  5. MICONAZOLE [Suspect]
     Route: 065
  6. ALDACTAZINE [Concomitant]
     Route: 065
  7. DIAMICRON [Interacting]
     Indication: ILL-DEFINED DISORDER
     Dosage: FOR 7 YEARS
     Route: 065

REACTIONS (3)
  - COMA [None]
  - DRUG INTERACTION [None]
  - HYPOGLYCAEMIA [None]
